FAERS Safety Report 24086503 (Version 3)
Quarter: 2024Q3

REPORT INFORMATION
  Report Type: Spontaneous
  Country: RU (occurrence: RU)
  Receive Date: 20240712
  Receipt Date: 20240724
  Transmission Date: 20241016
  Serious: Yes (Other)
  Sender: ABBVIE
  Company Number: RU-ABBOTT-2024A-1383980

PATIENT
  Age: 8 Year
  Sex: Male
  Weight: 13.3 kg

DRUGS (2)
  1. CREON [Suspect]
     Active Substance: PANCRELIPASE AMYLASE\PANCRELIPASE LIPASE\PANCRELIPASE PROTEASE
     Indication: Malabsorption
     Dosage: 1 CAPSULE 3 TIMES A DAY
     Route: 048
     Dates: start: 20230416, end: 20230424
  2. PANCRELIPASE [Concomitant]
     Active Substance: PANCRELIPASE
     Indication: Product used for unknown indication
     Dosage: 1 CAPS 3 TIMES A DAY
     Route: 048
     Dates: start: 20230425

REACTIONS (6)
  - Abdominal discomfort [Unknown]
  - Off label use [Recovered/Resolved]
  - Haematochezia [Recovering/Resolving]
  - Nausea [Recovering/Resolving]
  - Vomiting [Recovering/Resolving]
  - Drug ineffective [Recovering/Resolving]

NARRATIVE: CASE EVENT DATE: 20230416
